FAERS Safety Report 9592468 (Version 1)
Quarter: 2013Q3

REPORT INFORMATION
  Report Type: Spontaneous
  Country: US (occurrence: None)
  Receive Date: 20130927
  Receipt Date: 20130927
  Transmission Date: 20140515
  Serious: Yes (Death)
  Sender: FDA-Public Use
  Company Number: CABO-13003196

PATIENT
  Age: 66 Year
  Sex: Female

DRUGS (9)
  1. COMETRIQ [Suspect]
     Indication: THYROID CANCER
     Route: 048
     Dates: start: 20130612, end: 20130810
  2. METFORMIN (METFORMIN) [Concomitant]
  3. SIMVASTATIN (SIMVASTATIN) [Concomitant]
  4. SYNTHROID (LEVOTHYROXINE SODIUM) [Concomitant]
  5. HYDROCODONE (HYDROCODONE) [Concomitant]
  6. OMEPRAZOLE (OMEPRAZOLE) [Concomitant]
  7. LISINOPRIL (LISINOPRIL) [Concomitant]
  8. ZOFRAN (ONDANSETRON) [Concomitant]
  9. LOPERAMIDE (LOPERAMIDE) [Concomitant]

REACTIONS (1)
  - Myocardial infarction [None]
